FAERS Safety Report 8079114-3 (Version None)
Quarter: 2012Q1

REPORT INFORMATION
  Report Type: 
  Country: None (occurrence: None)
  Receive Date: 20120128
  Receipt Date: 20110818
  Transmission Date: 20120608
  Serious: No
  Sender: FDA-Public Use
  Company Number: US-ABBOTT-11P-163-0847863-00

PATIENT
  Age: 63 Year
  Sex: Female

DRUGS (10)
  1. PEVACID [Concomitant]
     Indication: GASTROOESOPHAGEAL REFLUX DISEASE
  2. METHOTREXATE [Concomitant]
     Indication: PRODUCT USED FOR UNKNOWN INDICATION
  3. ALLEGRA-D 12 HOUR [Concomitant]
     Indication: PRODUCT USED FOR UNKNOWN INDICATION
     Dosage: DAILY
  4. FOLIC ACID [Concomitant]
     Indication: PRODUCT USED FOR UNKNOWN INDICATION
     Dosage: DAILY
  5. HUMIRA [Suspect]
     Indication: RHEUMATOID ARTHRITIS
     Dates: start: 20110528
  6. NAPROXEN (ALEVE) [Concomitant]
     Indication: PRODUCT USED FOR UNKNOWN INDICATION
     Dosage: DAILY, AS REQUIRED
  7. MAXZIDE [Concomitant]
     Indication: MITRAL VALVE DISEASE
  8. MAXZIDE [Concomitant]
     Indication: HYPERTENSION
     Dosage: 75/50 DAILY
  9. ZOLOFT [Concomitant]
     Indication: DEPRESSION
  10. LIPITOR [Concomitant]
     Indication: PRODUCT USED FOR UNKNOWN INDICATION
     Dosage: DAILY

REACTIONS (1)
  - INJECTION SITE PAIN [None]
